FAERS Safety Report 5053183-7 (Version None)
Quarter: 2006Q3

REPORT INFORMATION
  Report Type: 
  Country: None (occurrence: None)
  Receive Date: 20060712
  Receipt Date: 20060628
  Transmission Date: 20061208
  Serious: Yes (Death, Other)
  Sender: FDA-Public Use
  Company Number: US200512002320

PATIENT
  Age: 72 Year
  Sex: Female

DRUGS (17)
  1. FORTEO [Suspect]
     Indication: BACK PAIN
     Dates: start: 20040201, end: 20050101
  2. FORTEO [Concomitant]
  3. METFORMIN [Concomitant]
  4. GABAPENTIN [Concomitant]
  5. FLUTICASONE PROPIONATE W/SALMETEROL (FLUTICASONE PROPIONATE, SALMETERO [Concomitant]
  6. ALBUTEROL [Concomitant]
  7. SULCRATE (SUCRALFATE) [Concomitant]
  8. OMEPRAZOLE [Concomitant]
  9. OXYBUTYNIN (OXYBUTYNIN) [Concomitant]
  10. ASA (ASPIRIN (ACETYLSALICYLIC ACID) CAPSULE [Concomitant]
  11. LORAZEPAM [Concomitant]
  12. AMITRIPTYLINE (AMITRIPTYLINE) [Concomitant]
  13. GLUCOSAMINE (GLUCOSAMINE) [Concomitant]
  14. CHONDROITIN SULFATE 9CHONDROITIN SULFATE) [Concomitant]
  15. MULTIVITAMINS, PLAIN [Concomitant]
  16. CALCIUM (CALCIUM) [Concomitant]
  17. ERGOCALCIFEROL (VITAMIN D) (ERGOCALCIFEROL (VITAMIN D) UNKNOWN FORMULA [Concomitant]

REACTIONS (18)
  - ARRHYTHMIA [None]
  - ARTHRALGIA [None]
  - BLOOD ALKALINE PHOSPHATASE INCREASED [None]
  - BRAIN OEDEMA [None]
  - COLLAPSE OF LUNG [None]
  - GASTRITIS [None]
  - HAEMOGLOBIN DECREASED [None]
  - HILAR LYMPHADENOPATHY [None]
  - INJECTION SITE PAIN [None]
  - LUNG CANCER METASTATIC [None]
  - LUNG NEOPLASM [None]
  - METASTASES TO BONE [None]
  - MUSCULOSKELETAL PAIN [None]
  - NECK PAIN [None]
  - OSTEOSARCOMA METASTATIC [None]
  - PAIN [None]
  - PLEURAL EFFUSION [None]
  - POSITRON EMISSION TOMOGRAM ABNORMAL [None]
